FAERS Safety Report 24395879 (Version 1)
Quarter: 2024Q4

REPORT INFORMATION
  Report Type: Spontaneous
  Country: US (occurrence: US)
  Receive Date: 20241004
  Receipt Date: 20241004
  Transmission Date: 20250114
  Serious: Yes (Hospitalization)
  Sender: PRINSTON PHARMACEUTICAL
  Company Number: US-PRINSTON PHARMACEUTICAL INC.-2024PRN00366

PATIENT
  Age: 50 Year
  Sex: Male

DRUGS (2)
  1. QUETIAPINE [Suspect]
     Active Substance: QUETIAPINE
  2. FAMOTIDINE [Suspect]
     Active Substance: FAMOTIDINE

REACTIONS (3)
  - Salmonellosis [Unknown]
  - Empyema [Unknown]
  - Pneumonia [Unknown]
